FAERS Safety Report 16569539 (Version 6)
Quarter: 2020Q2

REPORT INFORMATION
  Report Type: Report from Study
  Country: US (occurrence: US)
  Receive Date: 20190715
  Receipt Date: 20200428
  Transmission Date: 20200713
  Serious: Yes (Hospitalization)
  Sender: FDA-Public Use
  Company Number: PHEH2019US028537

PATIENT
  Sex: Male

DRUGS (1)
  1. ENTRESTO [Suspect]
     Active Substance: SACUBITRIL\VALSARTAN
     Indication: CARDIAC FAILURE
     Dosage: UNK UNK, BID
     Route: 048

REACTIONS (12)
  - Blood pressure fluctuation [Unknown]
  - Peripheral swelling [Unknown]
  - Chest pain [Unknown]
  - Fatigue [Unknown]
  - Hypotension [Unknown]
  - Heart rate increased [Unknown]
  - Neuralgia [Unknown]
  - Blood triglycerides increased [Unknown]
  - Discomfort [Unknown]
  - Blood pressure increased [Unknown]
  - Ejection fraction abnormal [Unknown]
  - Swelling [Unknown]
